FAERS Safety Report 4986823-9 (Version None)
Quarter: 2006Q2

REPORT INFORMATION
  Report Type: 
  Country: None (occurrence: None)
  Receive Date: 20060428
  Receipt Date: 20060117
  Transmission Date: 20061013
  Serious: Yes (Hospitalization)
  Sender: FDA-Public Use
  Company Number: US-MERCK-0601USA02248

PATIENT
  Age: 69 Year
  Sex: Female
  Weight: 70 kg

DRUGS (24)
  1. VIOXX [Suspect]
     Indication: PAIN IN EXTREMITY
     Route: 048
     Dates: start: 20020124, end: 20040930
  2. VIOXX [Suspect]
     Indication: BACK PAIN
     Route: 048
     Dates: start: 20020124, end: 20040930
  3. ACCUPRIL [Concomitant]
     Indication: HYPERTENSION
     Route: 065
     Dates: start: 20020601, end: 20030601
  4. HYDROCHLOROTHIAZIDE [Concomitant]
     Indication: HYPERTENSION
     Route: 065
     Dates: start: 20020801, end: 20030301
  5. XANAX [Concomitant]
     Indication: ANXIETY
     Route: 065
  6. AMITRIPTYLINE HYDROCHLORIDE [Concomitant]
     Indication: DEPRESSION
     Route: 065
  7. METOCLOPRAMIDE [Concomitant]
     Indication: DYSPEPSIA
     Route: 065
  8. HYDROCODONE HYDROCHLORIDE [Concomitant]
     Indication: PAIN
     Route: 065
     Dates: start: 20030701, end: 20030901
  9. ZOFRAN [Concomitant]
     Indication: NAUSEA
     Route: 065
  10. ZOLOFT [Concomitant]
     Indication: DEPRESSION
     Route: 065
  11. ACIPHEX [Concomitant]
     Indication: DYSPEPSIA
     Route: 065
  12. QUINARETIC [Concomitant]
     Indication: HYPERTENSION
     Route: 065
  13. PROMETHAZINE [Concomitant]
     Indication: HYPERSENSITIVITY
     Route: 065
  14. LORA TAB [Concomitant]
     Indication: PAIN
     Route: 065
     Dates: start: 20030701, end: 20030801
  15. WARFARIN [Concomitant]
     Indication: CARDIAC DISORDER
     Route: 065
     Dates: start: 20030801, end: 20031201
  16. DEXAMETHASONE [Concomitant]
     Indication: PAIN
     Route: 065
     Dates: start: 20030801, end: 20030901
  17. [THERAPY UNSPECIFIED] [Concomitant]
     Route: 065
  18. LORAZEPAM [Concomitant]
     Indication: ANXIETY
     Route: 065
  19. ZETIA [Concomitant]
     Indication: BLOOD CHOLESTEROL INCREASED
     Route: 065
     Dates: start: 20040201, end: 20040701
  20. ACCURETIC [Concomitant]
     Indication: HYPERTENSION
     Route: 065
     Dates: start: 20040201, end: 20040301
  21. ASPIRIN [Concomitant]
     Indication: CEREBROVASCULAR ACCIDENT PROPHYLAXIS
     Route: 065
     Dates: start: 20040401
  22. LIPITOR [Concomitant]
     Indication: BLOOD CHOLESTEROL INCREASED
     Route: 065
     Dates: start: 20040401, end: 20040601
  23. ADVIL [Concomitant]
     Indication: PAIN
     Route: 065
     Dates: start: 20020101
  24. PREMARIN [Concomitant]
     Indication: HORMONE REPLACEMENT THERAPY
     Route: 065
     Dates: start: 19710101, end: 20030101

REACTIONS (12)
  - ANXIETY [None]
  - BLOOD CHOLESTEROL INCREASED [None]
  - CAROTID ARTERY STENOSIS [None]
  - CEREBROVASCULAR ACCIDENT [None]
  - DEPRESSION [None]
  - DYSPEPSIA [None]
  - FALL [None]
  - FUNGAL INFECTION [None]
  - GASTRIC DISORDER [None]
  - HYPERSENSITIVITY [None]
  - NAUSEA [None]
  - NEOPLASM MALIGNANT [None]
